FAERS Safety Report 4646008-2 (Version None)
Quarter: 2005Q2

REPORT INFORMATION
  Report Type: 
  Country: None (occurrence: None)
  Receive Date: 20050425
  Receipt Date: 20050412
  Transmission Date: 20051028
  Serious: Yes (Other)
  Sender: FDA-Public Use
  Company Number: 2005057299

PATIENT
  Age: 56 Year
  Sex: Male
  Weight: 108.8633 kg

DRUGS (12)
  1. CELEBREX [Suspect]
     Indication: PAIN
     Dosage: ORAL
     Route: 048
     Dates: start: 20030101, end: 20030101
  2. BEXTRA [Suspect]
     Indication: PAIN
     Dosage: 20 MG (20 MG, 1 IN 1 D), ORAL
     Route: 048
     Dates: start: 20030101
  3. FUROSEMIDE [Concomitant]
  4. METOLAZONE [Concomitant]
  5. PIOGLITAZONE HCL [Concomitant]
  6. FOLIC ACID [Concomitant]
  7. RAMIPRIL [Concomitant]
  8. POTASSIUM ACETATE [Concomitant]
  9. ASPIRIN [Concomitant]
  10. METOPROLOL TARTRATE [Concomitant]
  11. ATORVASTATIN (ATORVASTATIN) [Concomitant]
  12. ALL OTHER THERAPEUTIC PRODUCTS (ALL OTHER THERAPEUTIC PRODUCTS) [Concomitant]

REACTIONS (6)
  - BLADDER CANCER [None]
  - BURNING SENSATION [None]
  - DRUG INEFFECTIVE [None]
  - NAUSEA [None]
  - NEOPLASM RECURRENCE [None]
  - RASH ERYTHEMATOUS [None]
